FAERS Safety Report 17256344 (Version 8)
Quarter: 2020Q4

REPORT INFORMATION
  Report Type: Report from Study
  Country: US (occurrence: US)
  Receive Date: 20200110
  Receipt Date: 20201128
  Transmission Date: 20210113
  Serious: Yes (Other)
  Sender: FDA-Public Use
  Company Number: NVSC2020US004555

PATIENT
  Sex: Male

DRUGS (1)
  1. ENTRESTO [Suspect]
     Active Substance: SACUBITRIL\VALSARTAN
     Indication: CARDIAC FAILURE
     Dosage: 1 DF, BID (97103 MG), FROM 5 YEARS APPROXIMATELY
     Route: 048

REACTIONS (11)
  - Parasomnia [Unknown]
  - Fatigue [Unknown]
  - Parkinsonism [Unknown]
  - Sleep talking [Unknown]
  - Thyroid hormones decreased [Recovering/Resolving]
  - Peripheral swelling [Recovering/Resolving]
  - Joint swelling [Recovering/Resolving]
  - Haemoglobin decreased [Not Recovered/Not Resolved]
  - Blood uric acid increased [Recovering/Resolving]
  - Fluid retention [Recovering/Resolving]
  - Asthenia [Unknown]
